FAERS Safety Report 5220907-5 (Version None)
Quarter: 2007Q1

REPORT INFORMATION
  Report Type: 
  Country: None (occurrence: None)
  Receive Date: 20070125
  Receipt Date: 20070125
  Transmission Date: 20070707
  Serious: Yes (Hospitalization)
  Sender: FDA-Public Use
  Company Number: None

PATIENT
  Sex: Female
  Weight: 68.0396 kg

DRUGS (4)
  1. CLINDAMYCIN [Suspect]
     Indication: DENTAL TREATMENT
     Dosage: PO PRIOR TO ADMISSION
     Route: 048
  2. AMOXICILLIN [Concomitant]
  3. CHLORHEXIDINE [Concomitant]
  4. OXYCODONE HCL [Concomitant]

REACTIONS (4)
  - ERYTHEMA [None]
  - PRURITUS [None]
  - RASH [None]
  - URTICARIA [None]
